FAERS Safety Report 14305743 (Version 1)
Quarter: 2017Q4

REPORT INFORMATION
  Report Type: Report from Study
  Country: US (occurrence: US)
  Receive Date: 20171219
  Receipt Date: 20171219
  Transmission Date: 20180321
  Serious: Yes (Hospitalization, Other)
  Sender: FDA-Public Use
  Company Number: US-ARIAD-2017US007603

PATIENT
  Sex: Male

DRUGS (3)
  1. PONATINIB [Suspect]
     Active Substance: PONATINIB
     Indication: CHRONIC MYELOMONOCYTIC LEUKAEMIA
     Dosage: 45 MG, QD
     Route: 048
     Dates: start: 20170118
  2. PONATINIB [Suspect]
     Active Substance: PONATINIB
     Dosage: 45 MG, QD
     Route: 048
  3. PONATINIB [Suspect]
     Active Substance: PONATINIB
     Dosage: 15 MG, QD
     Route: 048
     Dates: start: 20170116

REACTIONS (20)
  - Generalised oedema [Unknown]
  - Anaemia [Unknown]
  - Impaired healing [Not Recovered/Not Resolved]
  - Chromaturia [Recovered/Resolved]
  - Hypothyroidism [Unknown]
  - Muscle spasms [Unknown]
  - Polydipsia [Unknown]
  - Neutropenia [Unknown]
  - Hypertension [Unknown]
  - Pericardial effusion [Unknown]
  - Rash generalised [Not Recovered/Not Resolved]
  - Neuropathy peripheral [Unknown]
  - Asthenia [Unknown]
  - Pancytopenia [Unknown]
  - Drug hypersensitivity [Not Recovered/Not Resolved]
  - Dry skin [Not Recovered/Not Resolved]
  - Night sweats [Unknown]
  - Hyperuricaemia [Unknown]
  - White blood cell count decreased [Not Recovered/Not Resolved]
  - Off label use [Unknown]
